FAERS Safety Report 6522129-4 (Version None)
Quarter: 2009Q4

REPORT INFORMATION
  Report Type: 
  Country: None (occurrence: None)
  Receive Date: 20091229
  Receipt Date: 20091229
  Transmission Date: 20100525
  Serious: No
  Sender: FDA-Public Use
  Company Number: None

PATIENT
  Age: 54 Year
  Sex: Female
  Weight: 101 kg

DRUGS (13)
  1. LANTUS [Suspect]
     Indication: TYPE 1 DIABETES MELLITUS
     Dosage: 37 UNITS QHS
     Dates: start: 20091018, end: 20091022
  2. HEPARIN [Concomitant]
  3. LASIX [Concomitant]
  4. LABETALOL HCL [Concomitant]
  5. AMLODIPINE [Concomitant]
  6. LANSOPRAZOLE [Concomitant]
  7. ALUM-MG HYDRAOXIDE [Concomitant]
  8. ONDANSETRON [Concomitant]
  9. HYOSCYAMINES [Concomitant]
  10. ADAP BISACODYL [Concomitant]
  11. TYLENOL W/ CODEINE NO. 3 [Concomitant]
  12. CLONIDINE [Concomitant]
  13. BENADRYL [Concomitant]

REACTIONS (7)
  - ABDOMINAL PAIN [None]
  - BLOOD GLUCOSE INCREASED [None]
  - DIZZINESS [None]
  - NAUSEA [None]
  - RETCHING [None]
  - URINE OUTPUT DECREASED [None]
  - VOMITING [None]
